FAERS Safety Report 13138252 (Version 2)
Quarter: 2017Q1

REPORT INFORMATION
  Report Type: Spontaneous
  Country: US (occurrence: US)
  Receive Date: 20170123
  Receipt Date: 20170210
  Transmission Date: 20170428
  Serious: Yes (Death, Other)
  Sender: FDA-Public Use
  Company Number: US-009507513-1701USA008894

PATIENT
  Age: 56 Year
  Sex: Male

DRUGS (1)
  1. ZEPATIER [Suspect]
     Active Substance: ELBASVIR\GRAZOPREVIR
     Indication: CHRONIC HEPATITIS C
     Dosage: 1 DF, QD, STRENGTH 50/100 (UNITS UNSPECIFIED)
     Route: 048
     Dates: start: 20161202, end: 20170102

REACTIONS (2)
  - Death [Fatal]
  - Hepatitis [Unknown]

NARRATIVE: CASE EVENT DATE: 20170102
